FAERS Safety Report 5117389-0 (Version None)
Quarter: 2006Q3

REPORT INFORMATION
  Report Type: 
  Country: None (occurrence: None)
  Receive Date: 20060929
  Receipt Date: 20060919
  Transmission Date: 20061208
  Serious: Yes (Other)
  Sender: FDA-Public Use
  Company Number: AT-JNJFOC-20060904513

PATIENT
  Sex: Male

DRUGS (10)
  1. DURAGESIC-100 [Suspect]
     Route: 062
  2. DURAGESIC-100 [Suspect]
     Indication: PAIN
     Route: 062
  3. TRITTICO [Concomitant]
     Indication: ANTIDEPRESSANT THERAPY
     Route: 065
  4. SIRDALUD [Concomitant]
     Indication: MUSCLE RELAXANT THERAPY
     Route: 065
  5. HALCION [Concomitant]
     Indication: SLEEP DISORDER THERAPY
     Route: 065
  6. TRAMADOL HCL [Concomitant]
     Indication: PAIN
     Route: 065
  7. AGOPTON [Concomitant]
     Indication: ULCER
     Route: 065
  8. AGOPTON [Concomitant]
     Indication: GASTROOESOPHAGEAL REFLUX DISEASE
     Route: 065
  9. NOVALGIN [Concomitant]
     Indication: PAIN
     Route: 065
  10. ESCITALOPRAM OXALATE [Concomitant]
     Indication: ANTIDEPRESSANT THERAPY
     Route: 065

REACTIONS (4)
  - ASTHENIA [None]
  - ERECTILE DYSFUNCTION [None]
  - HICCUPS [None]
  - NAUSEA [None]
